FAERS Safety Report 7910586-8 (Version None)
Quarter: 2011Q4

REPORT INFORMATION
  Report Type: 
  Country: None (occurrence: None)
  Receive Date: 20111111
  Receipt Date: 20111109
  Transmission Date: 20120403
  Serious: Yes (Death)
  Sender: FDA-Public Use
  Company Number: PHHY2011TH098822

PATIENT
  Sex: Male

DRUGS (2)
  1. GLEEVEC [Suspect]
     Indication: CHRONIC MYELOID LEUKAEMIA
     Dosage: 600 MG, UNK
     Route: 065
  2. GLEEVEC [Suspect]
     Dosage: 600 MG, UNK
     Route: 065

REACTIONS (3)
  - HYPOPHAGIA [None]
  - DEATH [None]
  - FATIGUE [None]
